FAERS Safety Report 7439483-1 (Version None)
Quarter: 2011Q2

REPORT INFORMATION
  Report Type: 
  Country: None (occurrence: None)
  Receive Date: 20110427
  Receipt Date: 20110427
  Transmission Date: 20111010
  Serious: Yes (Death, Other)
  Sender: FDA-Public Use
  Company Number: US-JNJFOC-20110410196

PATIENT
  Age: 51 Year
  Sex: Female

DRUGS (3)
  1. ITRACONAZOLE [Suspect]
     Indication: PULMONARY SARCOIDOSIS
     Route: 065
  2. ITRACONAZOLE [Suspect]
     Indication: BRONCHOPULMONARY ASPERGILLOSIS
     Route: 065
  3. PREDNISOLONE [Suspect]
     Indication: IMMUNOSUPPRESSANT DRUG THERAPY
     Dosage: 20 TO 50 MG PER DAY
     Route: 065

REACTIONS (3)
  - ASPHYXIA [None]
  - HAEMOPTYSIS [None]
  - DRUG INEFFECTIVE [None]
